FAERS Safety Report 20523926 (Version 1)
Quarter: 2022Q1

REPORT INFORMATION
  Report Type: Spontaneous
  Country: CA (occurrence: CA)
  Receive Date: 20220228
  Receipt Date: 20220228
  Transmission Date: 20220423
  Serious: Yes (Other)
  Sender: FDA-Public Use
  Company Number: CA-TEVA-2022-CA-2011130

PATIENT
  Age: 52 Year
  Sex: Male
  Weight: 140 kg

DRUGS (22)
  1. BISOPROLOL [Suspect]
     Active Substance: BISOPROLOL
     Indication: Secondary progressive multiple sclerosis
     Route: 048
  2. GABAPENTIN [Suspect]
     Active Substance: GABAPENTIN
     Indication: Product used for unknown indication
     Dosage: 100 MILLIGRAM DAILY;
     Route: 065
  3. LORAZEPAM [Suspect]
     Active Substance: LORAZEPAM
     Indication: Product used for unknown indication
     Route: 048
  4. PRAMIPEXOLE DIHYDROCHLORIDE [Suspect]
     Active Substance: PRAMIPEXOLE DIHYDROCHLORIDE
     Indication: Secondary progressive multiple sclerosis
     Dosage: .25 MILLIGRAM DAILY;
     Route: 048
  5. RABEPRAZOLE [Suspect]
     Active Substance: RABEPRAZOLE
     Indication: Secondary progressive multiple sclerosis
     Dosage: 20 MILLIGRAM DAILY;
     Route: 048
  6. ROSUVASTATIN CALCIUM [Suspect]
     Active Substance: ROSUVASTATIN CALCIUM
     Indication: Product used for unknown indication
     Dosage: 5 MILLIGRAM DAILY;
     Route: 048
  7. TECFIDERA [Suspect]
     Active Substance: DIMETHYL FUMARATE
     Indication: Product used for unknown indication
     Route: 065
  8. REBIF [Suspect]
     Active Substance: INTERFERON BETA-1A
     Indication: Product used for unknown indication
     Route: 058
  9. FLOMAX [Suspect]
     Active Substance: TAMSULOSIN HYDROCHLORIDE
     Indication: Secondary progressive multiple sclerosis
     Route: 065
  10. DOXEPIN HYDROCHLORIDE [Suspect]
     Active Substance: DOXEPIN HYDROCHLORIDE
     Indication: Product used for unknown indication
     Dosage: 6 MILLIGRAM DAILY;
     Route: 065
  11. BACLOFEN [Suspect]
     Active Substance: BACLOFEN
     Indication: Product used for unknown indication
     Dosage: 10 MILLIGRAM DAILY;
     Route: 048
  12. BACLOFEN [Suspect]
     Active Substance: BACLOFEN
     Dosage: 90 MILLIGRAM DAILY;
     Route: 065
  13. AMLODIPINE BESYLATE\CANDESARTAN CILEXETIL [Suspect]
     Active Substance: AMLODIPINE BESYLATE\CANDESARTAN CILEXETIL
     Indication: Secondary progressive multiple sclerosis
     Dosage: 10 MILLIGRAM DAILY;
     Route: 048
  14. ACETYL SALICYLIC ACID/CODEINE [Concomitant]
     Indication: Product used for unknown indication
     Dosage: 81 MILLIGRAM DAILY;
     Route: 065
  15. ALLOPURINOL\BENZBROMARONE [Concomitant]
     Active Substance: ALLOPURINOL\BENZBROMARONE
     Indication: Product used for unknown indication
     Dosage: 100 MILLIGRAM DAILY;
     Route: 048
  16. AMINOBENZOIC ACID /BIOTIN /CALCIUM DPANTOTHENATE / CHOLINE BITARTRATE [Concomitant]
     Indication: Product used for unknown indication
  17. ASPIRIN [Concomitant]
     Active Substance: ASPIRIN
     Indication: Product used for unknown indication
  18. ATIVAN [Concomitant]
     Active Substance: LORAZEPAM
     Indication: Product used for unknown indication
     Dosage: .5 MILLIGRAM DAILY;
  19. CALCIUM [Concomitant]
     Active Substance: CALCIUM
     Indication: Product used for unknown indication
  20. DALFAMPRIDINE [Concomitant]
     Active Substance: DALFAMPRIDINE
     Indication: Product used for unknown indication
     Dosage: 10 MILLIGRAM DAILY;
  21. RABEPRAZOLE SODIUM [Concomitant]
     Active Substance: RABEPRAZOLE SODIUM
     Indication: Product used for unknown indication
  22. VITAMIN D3 [Concomitant]
     Active Substance: CHOLECALCIFEROL
     Indication: Product used for unknown indication

REACTIONS (24)
  - Anxiety [Unknown]
  - Ataxia [Unknown]
  - Balance disorder [Unknown]
  - Bradycardia [Unknown]
  - Central nervous system lesion [Unknown]
  - Dizziness [Unknown]
  - Dysarthria [Unknown]
  - Erectile dysfunction [Unknown]
  - Fall [Unknown]
  - Gait spastic [Unknown]
  - Hypertonic bladder [Unknown]
  - Hypoaesthesia [Unknown]
  - Insomnia [Unknown]
  - Memory impairment [Unknown]
  - Micturition urgency [Unknown]
  - Monoparesis [Unknown]
  - Movement disorder [Unknown]
  - Multiple sclerosis relapse [Unknown]
  - Muscle spasticity [Unknown]
  - Nocturia [Unknown]
  - Pain [Unknown]
  - Pollakiuria [Unknown]
  - Relapsing-remitting multiple sclerosis [Unknown]
  - Needle fatigue [Unknown]
